FAERS Safety Report 4561113-7 (Version None)
Quarter: 2005Q1

REPORT INFORMATION
  Report Type: 
  Country: None (occurrence: None)
  Receive Date: 20050121
  Receipt Date: 20050112
  Transmission Date: 20050727
  Serious: Yes (Disabling, Other)
  Sender: FDA-Public Use
  Company Number: 2005S1000005

PATIENT
  Age: 62 Year
  Sex: Male

DRUGS (3)
  1. CUBICIN [Suspect]
  2. XIGRIS [Suspect]
     Indication: SEPSIS
     Dates: start: 20040801, end: 20040801
  3. DROTRECOGIN ALFA [Concomitant]

REACTIONS (5)
  - ABASIA [None]
  - ACTIVITIES OF DAILY LIVING IMPAIRED [None]
  - CARDIAC VALVE DISEASE [None]
  - MUSCLE ATROPHY [None]
  - MUSCLE TIGHTNESS [None]
